FAERS Safety Report 9719313 (Version 1)
Quarter: 2013Q4

REPORT INFORMATION
  Report Type: Spontaneous
  Country: BR (occurrence: BR)
  Receive Date: 20131127
  Receipt Date: 20131127
  Transmission Date: 20140711
  Serious: Yes (Other)
  Sender: FDA-Public Use
  Company Number: BR-PFIZER INC-2013333703

PATIENT
  Age: 76 Year
  Sex: Female

DRUGS (1)
  1. XALATAN [Suspect]
     Indication: INTRAOCULAR PRESSURE INCREASED
     Dosage: ONE DROP EACH EYE (3 UG TOTAL), 1X/DAY
     Route: 047
     Dates: start: 201308

REACTIONS (6)
  - Headache [Unknown]
  - Pain in extremity [Unknown]
  - Pain in extremity [Unknown]
  - Asthenia [Unknown]
  - Retching [Unknown]
  - Pain [Unknown]
